FAERS Safety Report 4931633-1 (Version None)
Quarter: 2006Q1

REPORT INFORMATION
  Report Type: 
  Country: None (occurrence: None)
  Receive Date: 20060303
  Receipt Date: 20051101
  Transmission Date: 20060701
  Serious: Yes (Life-Threatening, Hospitalization)
  Sender: FDA-Public Use
  Company Number: US-BRISTOL-MYERS SQUIBB COMPANY-13163597

PATIENT
  Age: 84 Year
  Sex: Male

DRUGS (13)
  1. ERBITUX [Suspect]
     Indication: COLON CANCER METASTATIC
     Dosage: LOAD DOSE.
     Route: 042
     Dates: start: 20051026, end: 20051026
  2. ZANTAC [Concomitant]
     Indication: PREMEDICATION
     Dates: start: 20051026, end: 20051026
  3. DECADRON SRC [Concomitant]
     Indication: PREMEDICATION
     Dates: start: 20051026, end: 20051026
  4. EULEXIN [Concomitant]
  5. COLACE [Concomitant]
  6. ATARAX [Concomitant]
  7. CASODEX [Concomitant]
  8. LOVENOX [Concomitant]
  9. HYDROCODONE [Concomitant]
  10. TOPROL-XL [Concomitant]
  11. ISORBIDE [Concomitant]
  12. NITROQUICK [Concomitant]
  13. ASPIRIN [Concomitant]

REACTIONS (1)
  - ANAPHYLACTIC REACTION [None]
